FAERS Safety Report 5288027-1 (Version None)
Quarter: 2007Q1

REPORT INFORMATION
  Report Type: 
  Country: None (occurrence: None)
  Receive Date: 20070330
  Receipt Date: 20070320
  Transmission Date: 20070707
  Serious: Yes (Life-Threatening, Hospitalization, Other)
  Sender: FDA-Public Use
  Company Number: 15970

PATIENT
  Age: 11 Year
  Sex: Female
  Weight: 24 kg

DRUGS (41)
  1. PENTOSTATIN [Suspect]
     Indication: GRAFT VERSUS HOST DISEASE
     Dosage: 4 MG/M2 FORTNIGHTLY IV
     Route: 042
     Dates: start: 20070202, end: 20070312
  2. VANCOMYCIN [Concomitant]
  3. MEROPENEM [Concomitant]
  4. OXYCODONE HCL EXTENDED-RELEASE [Concomitant]
  5. METRONIDAZOLE ORAL SUSPENSION [Concomitant]
  6. SULFAMETHOXAZOLE + TRIMETHOPRIM [Concomitant]
  7. CEFTAZIDIME [Concomitant]
  8. NYSTATIN [Concomitant]
  9. BECLOMETHASONE AQUEOUS [Concomitant]
  10. CLOTRIMAZOLE TROCHE [Concomitant]
  11. DIPHENHYDRAMINE HCL [Concomitant]
  12. ACETAMINOPHEN ORAL TABS [Concomitant]
  13. CALCIUM CARBONATE CHEW TAB [Concomitant]
  14. CMV IMMUNOGLOBULIN [Concomitant]
  15. FOSCARNET [Concomitant]
  16. GABAPENTIN ORAL CAPS [Concomitant]
  17. HUMALOG [Concomitant]
  18. INSULIN [Concomitant]
  19. LANSOPRAZOLE [Concomitant]
  20. LORAZEPAM [Concomitant]
  21. METRONIDAZOLE [Concomitant]
  22. MICAFUNGIN [Concomitant]
  23. PENTAMIDINE ISETHIONATE [Concomitant]
  24. GENTAMICIN [Concomitant]
  25. HYDROCORTISONE CREAM [Concomitant]
  26. METHYLPREDNISOLONE SODIUM SUCCINATE [Concomitant]
  27. MYCOPHENOLATE MOFETIL [Concomitant]
  28. NS [Concomitant]
  29. PENICILLIN [Concomitant]
  30. LOPERAMIDE HCL [Concomitant]
  31. URSODIOL ORAL CAPS [Concomitant]
  32. VITAMIN E ORAL CAPS [Concomitant]
  33. HYDROMORPHONE IV [Concomitant]
  34. MORPHINE [Concomitant]
  35. PHYTONADIONE [Concomitant]
  36. ALBUMIN (HUMAN) [Concomitant]
  37. D10W (DEXTROSE 10% POTASSIUM CHLORIDE) [Concomitant]
  38. DOPAMINE HCL IN 5% DEXTROSE [Concomitant]
  39. TACROLIMUS [Concomitant]
  40. ESTROGEN CREAM [Concomitant]
  41. TPN [Concomitant]

REACTIONS (14)
  - ASCITES [None]
  - BACTERIAL INFECTION [None]
  - CHOLANGITIS [None]
  - CHOLECYSTITIS [None]
  - HEPATIC FAILURE [None]
  - HEPATITIS [None]
  - HYPOTENSION [None]
  - LUNG NEOPLASM [None]
  - PANCREATITIS [None]
  - PLEURAL EFFUSION [None]
  - PNEUMATOSIS [None]
  - RENAL MASS [None]
  - SEPSIS [None]
  - SINUS TACHYCARDIA [None]
